FAERS Safety Report 16226263 (Version 2)
Quarter: 2019Q2

REPORT INFORMATION
  Report Type: Spontaneous
  Country: GB (occurrence: GB)
  Receive Date: 20190423
  Receipt Date: 20190504
  Transmission Date: 20190711
  Serious: Yes (Other)
  Sender: FDA-Public Use
  Company Number: GB-AUROBINDO-AUR-APL-2019-021542

PATIENT

DRUGS (1)
  1. CO-AMOXICLAV [Suspect]
     Active Substance: AMOXICILLIN\CLAVULANATE POTASSIUM
     Indication: KIDNEY INFECTION
     Dosage: 3 DOSAGE FORM, DAILY
     Route: 048
     Dates: start: 20190314, end: 20190322

REACTIONS (6)
  - Abdominal pain [Unknown]
  - Pain of skin [Unknown]
  - Dermatitis allergic [Not Recovered/Not Resolved]
  - Urticaria [Unknown]
  - Diarrhoea [Unknown]
  - Skin exfoliation [Unknown]

NARRATIVE: CASE EVENT DATE: 20190320
